FAERS Safety Report 21133517 (Version 3)
Quarter: 2022Q3

REPORT INFORMATION
  Report Type: Report from Study
  Country: US (occurrence: US)
  Receive Date: 20220726
  Receipt Date: 20220926
  Transmission Date: 20221026
  Serious: Yes (Other)
  Sender: FDA-Public Use
  Company Number: US-TAKEDA-2022TUS050101

PATIENT
  Age: 27 Year
  Sex: Female
  Weight: 45.35 kg

DRUGS (10)
  1. LANADELUMAB [Suspect]
     Active Substance: LANADELUMAB
     Indication: Hereditary angioedema
     Dosage: 300 MILLIGRAM, Q2WEEKS
     Route: 050
     Dates: start: 20220720
  2. LANADELUMAB [Suspect]
     Active Substance: LANADELUMAB
     Indication: Immune system disorder
     Dosage: 300 MILLIGRAM, Q2WEEKS
     Route: 058
     Dates: start: 20220720
  3. ONDANSETRON HCL [Concomitant]
     Active Substance: ONDANSETRON HYDROCHLORIDE
  4. PEPCID [Concomitant]
     Active Substance: FAMOTIDINE
  5. DEXAMETHASONE [Concomitant]
     Active Substance: DEXAMETHASONE
  6. LORAZEPAM [Concomitant]
     Active Substance: LORAZEPAM
  7. SUCRALFATE [Concomitant]
     Active Substance: SUCRALFATE
  8. EPINEPHRINE [Concomitant]
     Active Substance: EPINEPHRINE
  9. TYLENOL [Concomitant]
     Active Substance: ACETAMINOPHEN
  10. BENADRYL ALLERGY [Concomitant]
     Active Substance: DIPHENHYDRAMINE HYDROCHLORIDE

REACTIONS (19)
  - Syncope [Unknown]
  - Feeling abnormal [Unknown]
  - Palpitations [Unknown]
  - Nausea [Not Recovered/Not Resolved]
  - Paraesthesia [Not Recovered/Not Resolved]
  - Hypoaesthesia [Not Recovered/Not Resolved]
  - Headache [Not Recovered/Not Resolved]
  - Injection site pain [Recovered/Resolved]
  - Adverse drug reaction [Unknown]
  - Therapy interrupted [Recovered/Resolved]
  - Insurance issue [Not Recovered/Not Resolved]
  - Oral mucosal blistering [Unknown]
  - Rash [Unknown]
  - Hereditary angioedema [Unknown]
  - Oropharyngeal pain [Unknown]
  - Eye pain [Unknown]
  - Abdominal pain [Unknown]
  - Disorientation [Unknown]
  - Pain [Unknown]

NARRATIVE: CASE EVENT DATE: 20220802
